FAERS Safety Report 21301611 (Version 2)
Quarter: 2023Q1

REPORT INFORMATION
  Report Type: Spontaneous
  Country: US (occurrence: US)
  Receive Date: 20220907
  Receipt Date: 20230227
  Transmission Date: 20230418
  Serious: Yes (Other)
  Sender: FDA-Public Use
  Company Number: US-GSK-US2022AMR127369

PATIENT
  Sex: Female

DRUGS (1)
  1. BENLYSTA [Suspect]
     Active Substance: BELIMUMAB
     Indication: Systemic lupus erythematosus
     Dosage: 10 MG/KG, Z (AT WEEK 0,2,4 AND EVERY 4 WEEKS THERAFTER)
     Route: 042

REACTIONS (3)
  - Kidney infection [Unknown]
  - Headache [Unknown]
  - Vomiting [Unknown]
